FAERS Safety Report 7301401-4 (Version None)
Quarter: 2011Q1

REPORT INFORMATION
  Report Type: 
  Country: None (occurrence: None)
  Receive Date: 20110218
  Receipt Date: 20110208
  Transmission Date: 20110831
  Serious: Yes (Other)
  Sender: FDA-Public Use
  Company Number: GB-TEVA-266923ISR

PATIENT
  Age: 37 Year
  Sex: Female

DRUGS (1)
  1. COPAXONE [Suspect]
     Route: 058
     Dates: start: 20090820, end: 20110111

REACTIONS (4)
  - AURICULAR SWELLING [None]
  - SECRETION DISCHARGE [None]
  - EYE SWELLING [None]
  - URTICARIA [None]
